FAERS Safety Report 8220178-1 (Version None)
Quarter: 2012Q1

REPORT INFORMATION
  Report Type: 
  Country: None (occurrence: None)
  Receive Date: 20120320
  Receipt Date: 20120312
  Transmission Date: 20120608
  Serious: Yes (Other)
  Sender: FDA-Public Use
  Company Number: US-BAYER-2012-024509

PATIENT
  Sex: Female

DRUGS (2)
  1. YASMIN [Suspect]
     Dosage: UNK
     Dates: start: 20080101
  2. YAZ [Suspect]
     Dosage: UNK
     Dates: start: 20080101

REACTIONS (4)
  - PAIN [None]
  - PULMONARY EMBOLISM [None]
  - EMOTIONAL DISTRESS [None]
  - INJURY [None]
